FAERS Safety Report 4561402-6 (Version None)
Quarter: 2005Q1

REPORT INFORMATION
  Report Type: 
  Country: None (occurrence: None)
  Receive Date: 20050126
  Receipt Date: 20050112
  Transmission Date: 20050727
  Serious: Yes (Death)
  Sender: FDA-Public Use
  Company Number: US-ROCHE-393119

PATIENT
  Age: 84 Year
  Sex: Female

DRUGS (1)
  1. TORADOL [Suspect]
     Indication: DRUG USE FOR UNKNOWN INDICATION
     Route: 042
     Dates: start: 20041215

REACTIONS (1)
  - RENAL FAILURE ACUTE [None]
